FAERS Safety Report 9713566 (Version 3)
Quarter: 2014Q1

REPORT INFORMATION
  Report Type: Report from Study
  Country: FR (occurrence: DZ)
  Receive Date: 20131126
  Receipt Date: 20140127
  Transmission Date: 20141002
  Serious: Yes (Hospitalization, Other)
  Sender: FDA-Public Use
  Company Number: FR-MILLENNIUM PHARMACEUTICALS, INC.-2013JNJ000719

PATIENT
  Sex: 0

DRUGS (3)
  1. VELCADE [Suspect]
     Indication: PLASMA CELL MYELOMA
     Dosage: UNK
     Route: 065
     Dates: start: 20120715, end: 20120825
  2. CEFOTAXIME [Concomitant]
     Dosage: UNK
     Dates: start: 20130728
  3. INSULIN [Concomitant]

REACTIONS (2)
  - Myelodysplastic syndrome [Unknown]
  - Anaemia [Recovered/Resolved with Sequelae]
